FAERS Safety Report 10654452 (Version 2)
Quarter: 2014Q4

REPORT INFORMATION
  Report Type: Spontaneous
  Country: AU (occurrence: AU)
  Receive Date: 20141216
  Receipt Date: 20141216
  Transmission Date: 20150529
  Serious: Yes (Other)
  Sender: FDA-Public Use
  Company Number: AU-009507513-1410AUS016108

PATIENT
  Age: 19 Year
  Sex: Female

DRUGS (2)
  1. IMPLANON [Suspect]
     Active Substance: ETONOGESTREL
     Dosage: FIRST IMPLANT, RIGHT ARM
     Route: 059
     Dates: start: 20130725, end: 20141106
  2. IMPLANON [Suspect]
     Active Substance: ETONOGESTREL
     Dosage: SECOND IMPLANT, LEFT ARM
     Route: 059
     Dates: start: 20141106

REACTIONS (4)
  - Acne [Recovered/Resolved]
  - Skin disorder [Unknown]
  - Device kink [Recovered/Resolved]
  - Device breakage [Recovered/Resolved]

NARRATIVE: CASE EVENT DATE: 2014
